FAERS Safety Report 17316627 (Version 2)
Quarter: 2020Q1

REPORT INFORMATION
  Report Type: Spontaneous
  Country: GB (occurrence: GB)
  Receive Date: 20200124
  Receipt Date: 20200217
  Transmission Date: 20200409
  Serious: Yes (Hospitalization)
  Sender: FDA-Public Use
  Company Number: GB-NEOS THERAPEUTICS, LP-2020NEO00003

PATIENT
  Age: 38 Year
  Sex: Male

DRUGS (1)
  1. AMPHETAMINE [Suspect]
     Active Substance: AMPHETAMINE
     Dosage: 1 G, 1X/DAY
     Route: 045

REACTIONS (4)
  - Cardiac failure [Unknown]
  - Thrombosis [Unknown]
  - Acute myocardial infarction [Unknown]
  - Cardiomyopathy [Unknown]
